FAERS Safety Report 25413867 (Version 2)
Quarter: 2025Q2

REPORT INFORMATION
  Report Type: Spontaneous
  Country: US (occurrence: US)
  Receive Date: 20250609
  Receipt Date: 20250610
  Transmission Date: 20250716
  Serious: No
  Sender: PFIZER
  Company Number: US-PFIZER INC-202500117240

PATIENT
  Age: 73 Year
  Sex: Female

DRUGS (9)
  1. IBRANCE [Suspect]
     Active Substance: PALBOCICLIB
     Dates: start: 202107, end: 202410
  2. IBRANCE [Suspect]
     Active Substance: PALBOCICLIB
     Route: 048
     Dates: start: 20250516
  3. ALBUTEROL [Concomitant]
     Active Substance: ALBUTEROL
  4. CLONAZEPAM [Concomitant]
     Active Substance: CLONAZEPAM
  5. GABAPENTIN [Concomitant]
     Active Substance: GABAPENTIN
  6. IPRATROPIUM [Concomitant]
     Active Substance: IPRATROPIUM
  7. NYSTATIN [Concomitant]
     Active Substance: NYSTATIN
  8. TAMSULOSIN [Concomitant]
     Active Substance: TAMSULOSIN
  9. FASLODEX [Concomitant]
     Active Substance: FULVESTRANT

REACTIONS (3)
  - Diarrhoea [Not Recovered/Not Resolved]
  - Stomatitis [Not Recovered/Not Resolved]
  - Nausea [Not Recovered/Not Resolved]

NARRATIVE: CASE EVENT DATE: 20250516
